FAERS Safety Report 19162985 (Version 2)
Quarter: 2021Q2

REPORT INFORMATION
  Report Type: Spontaneous
  Country: US (occurrence: US)
  Receive Date: 20210421
  Receipt Date: 20210511
  Transmission Date: 20210717
  Serious: No
  Sender: FDA-Public Use
  Company Number: US-SA-2021SA126390

PATIENT
  Sex: Male

DRUGS (17)
  1. DICLOFENAC [Concomitant]
     Active Substance: DICLOFENAC
  2. HYDROXYZINE [Concomitant]
     Active Substance: HYDROXYZINE HYDROCHLORIDE
  3. QUETIAPINE. [Concomitant]
     Active Substance: QUETIAPINE
     Dosage: UNK MG
  4. TAMSULOSIN [Concomitant]
     Active Substance: TAMSULOSIN
  5. BRILINTA [Concomitant]
     Active Substance: TICAGRELOR
  6. MYRBETRIQ [Concomitant]
     Active Substance: MIRABEGRON
     Dosage: UNK MG
  7. VITAMIN D3 [Concomitant]
     Active Substance: CHOLECALCIFEROL
  8. FAMOTIDINE. [Concomitant]
     Active Substance: FAMOTIDINE
  9. FINASTERIDE. [Concomitant]
     Active Substance: FINASTERIDE
  10. METOPROLOL. [Concomitant]
     Active Substance: METOPROLOL
     Dosage: UNK MG
  11. LAMOTRIGINE. [Concomitant]
     Active Substance: LAMOTRIGINE
  12. VUMERITY [Concomitant]
     Active Substance: DIROXIMEL FUMARATE
  13. ESCITALOPRAM [Concomitant]
     Active Substance: ESCITALOPRAM OXALATE
  14. SILDENAFIL. [Concomitant]
     Active Substance: SILDENAFIL
  15. SIMVASTATIN. [Concomitant]
     Active Substance: SIMVASTATIN
  16. AUBAGIO [Suspect]
     Active Substance: TERIFLUNOMIDE
     Indication: MULTIPLE SCLEROSIS
     Dosage: UNK
     Route: 065
  17. BACLOFEN. [Concomitant]
     Active Substance: BACLOFEN

REACTIONS (2)
  - Laboratory test abnormal [Unknown]
  - Flushing [Unknown]
